FAERS Safety Report 4343193-7 (Version None)
Quarter: 2004Q1

REPORT INFORMATION
  Report Type: 
  Country: None (occurrence: None)
  Receive Date: 20040325
  Receipt Date: 20031210
  Transmission Date: 20041129
  Serious: No
  Sender: FDA-Public Use
  Company Number: USA031254431

PATIENT
  Age: 82 Year
  Sex: Female
  Weight: 45 kg

DRUGS (3)
  1. FORTEO [Suspect]
     Indication: OSTEOPOROSIS
     Dates: start: 20031203
  2. PROCRIT (ERYTHROPOIETIN) [Concomitant]
  3. IRON [Concomitant]

REACTIONS (3)
  - FLATULENCE [None]
  - MUSCLE CRAMP [None]
  - PALPITATIONS [None]
